FAERS Safety Report 23709705 (Version 1)
Quarter: 2024Q2

REPORT INFORMATION
  Report Type: Spontaneous
  Country: NL (occurrence: NL)
  Receive Date: 20240404
  Receipt Date: 20240404
  Transmission Date: 20240716
  Serious: Yes (Other)
  Sender: FDA-Public Use
  Company Number: NL-NOVEN PHARMACEUTICALS, INC.-2024-NOV-NL000372

PATIENT
  Age: 75 Year
  Sex: Female

DRUGS (1)
  1. ESTRADIOL [Suspect]
     Active Substance: ESTRADIOL
     Indication: Product used for unknown indication
     Dosage: UNKNOWN, UNK
     Route: 048

REACTIONS (10)
  - Tricuspid valve incompetence [Unknown]
  - Coronary artery disease [Unknown]
  - Thrombosis [Unknown]
  - Pulmonary hypertension [Unknown]
  - Ejection fraction decreased [Unknown]
  - Retroperitoneal haemorrhage [Unknown]
  - Cardiogenic shock [Unknown]
  - Shock haemorrhagic [Unknown]
  - Cardiac ventricular thrombosis [Unknown]
  - Pulmonary embolism [Unknown]
